FAERS Safety Report 8053532-1 (Version None)
Quarter: 2011Q4

REPORT INFORMATION
  Report Type: 
  Country: None (occurrence: None)
  Receive Date: 20111213
  Receipt Date: 20110928
  Transmission Date: 20120403
  Serious: No
  Sender: FDA-Public Use
  Company Number: 2011SP046068

PATIENT
  Age: 28 Year
  Sex: Female

DRUGS (9)
  1. SAPHRIS [Suspect]
     Indication: BIPOLAR DISORDER
     Dosage: 10 MG;BID;SL
     Route: 060
     Dates: start: 20110214, end: 20110601
  2. SAPHRIS [Suspect]
     Indication: POST-TRAUMATIC STRESS DISORDER
     Dosage: 10 MG;BID;SL
     Route: 060
     Dates: start: 20110214, end: 20110601
  3. SAPHRIS [Suspect]
     Indication: BIPOLAR DISORDER
     Dosage: 10 MG;BID;SL
     Route: 060
     Dates: start: 20110601, end: 20110627
  4. SAPHRIS [Suspect]
     Indication: POST-TRAUMATIC STRESS DISORDER
     Dosage: 10 MG;BID;SL
     Route: 060
     Dates: start: 20110601, end: 20110627
  5. LISINOPRIL [Concomitant]
  6. DEPAKOTE [Concomitant]
  7. EFFEXOR XR [Concomitant]
  8. AMBIEN [Concomitant]
  9. VALIUM [Concomitant]

REACTIONS (2)
  - VOMITING [None]
  - NAUSEA [None]
